FAERS Safety Report 5840004-5 (Version None)
Quarter: 2008Q3

REPORT INFORMATION
  Report Type: 
  Country: None (occurrence: None)
  Receive Date: 20080811
  Receipt Date: 20080730
  Transmission Date: 20090109
  Serious: Yes (Other)
  Sender: FDA-Public Use
  Company Number: SE-NOVOPROD-278063

PATIENT
  Age: 60 Year
  Sex: Male
  Weight: 87 kg

DRUGS (9)
  1. INSULATARD [Suspect]
     Indication: TYPE 2 DIABETES MELLITUS
     Dates: start: 19971101, end: 20040101
  2. GLIMEPIRIDE [Concomitant]
  3. QUINAPRIL [Concomitant]
     Dates: end: 20000101
  4. METOPROLOL SUCCINATE [Concomitant]
  5. FUROSEMIDE [Concomitant]
  6. SIMVASTATIN [Concomitant]
  7. ASPIRIN [Concomitant]
  8. CANDESARTAN [Concomitant]
     Dates: start: 20000101
  9. AMLOPIN                            /00972402/ [Concomitant]
     Dates: start: 20000101

REACTIONS (2)
  - RENAL IMPAIRMENT [None]
  - WEIGHT INCREASED [None]
